FAERS Safety Report 4449077-8 (Version None)
Quarter: 2004Q3

REPORT INFORMATION
  Report Type: 
  Country: None (occurrence: None)
  Receive Date: 20040909
  Receipt Date: 20040823
  Transmission Date: 20050211
  Serious: Yes (Other)
  Sender: FDA-Public Use
  Company Number: USA040876303

PATIENT
  Age: 82 Year
  Sex: Male

DRUGS (4)
  1. HUMALOG [Suspect]
     Dosage: 8 U/3 DAY
  2. CENTRUM [Concomitant]
  3. LIPITOR [Concomitant]
  4. LANTUS [Concomitant]

REACTIONS (8)
  - BLINDNESS UNILATERAL [None]
  - BLOOD GLUCOSE INCREASED [None]
  - CATARACT [None]
  - EYE DISORDER [None]
  - INJECTION SITE HAEMORRHAGE [None]
  - OPTIC ISCHAEMIC NEUROPATHY [None]
  - PHARMACEUTICAL PRODUCT COMPLAINT [None]
  - TREATMENT NONCOMPLIANCE [None]
